FAERS Safety Report 24889296 (Version 1)
Quarter: 2025Q1

REPORT INFORMATION
  Report Type: Spontaneous
  Country: AU (occurrence: AU)
  Receive Date: 20250127
  Receipt Date: 20250127
  Transmission Date: 20250408
  Serious: Yes (Other)
  Sender: CATALYST PHARMA
  Company Number: AU-CATALYSTPHARMACEUTICALPARTNERS-AU-CATA-25-00099

PATIENT
  Sex: Male

DRUGS (1)
  1. FYCOMPA [Suspect]
     Active Substance: PERAMPANEL
     Indication: Generalised tonic-clonic seizure
     Dosage: 12.0 MILLIGRAM(S) (12 MILLIGRAM(S), 1 IN 1 DAY)
     Route: 048

REACTIONS (2)
  - Seizure [Unknown]
  - Malaise [Unknown]
